FAERS Safety Report 7631891-9 (Version None)
Quarter: 2011Q3

REPORT INFORMATION
  Report Type: 
  Country: None (occurrence: None)
  Receive Date: 20110725
  Receipt Date: 20110504
  Transmission Date: 20111222
  Serious: No
  Sender: FDA-Public Use
  Company Number: US-BRISTOL-MYERS SQUIBB COMPANY-15717754

PATIENT
  Sex: Female

DRUGS (1)
  1. COUMADIN [Suspect]
     Dosage: RECEIVED FOR PAST YEAR OR 2

REACTIONS (3)
  - MALAISE [None]
  - ALOPECIA [None]
  - MENORRHAGIA [None]
